FAERS Safety Report 9524574 (Version 1)
Quarter: 2013Q1

REPORT INFORMATION
  Report Type: Spontaneous
  Country: US (occurrence: None)
  Receive Date: 20130305
  Receipt Date: 20130305
  Transmission Date: 20140127
  Serious: Yes (Other)
  Sender: FDA-Public Use
  Company Number: 163-21880-12020619

PATIENT
  Age: 61 Year
  Sex: Female
  Weight: 58.06 kg

DRUGS (12)
  1. REVLIMID (LENALIDOMIDE) (CAPSULES) [Suspect]
     Indication: PLASMA CELL MYELOMA
     Dosage: 10 MG, CAPSULE DAILY X 21 DAYS, PO
     Dates: start: 20110101
  2. ASPIRIN [Concomitant]
  3. ATIVAN (LORAZEPAM) [Concomitant]
  4. CALCIUM [Concomitant]
  5. DECADRON (DEXAMETHASONE) [Concomitant]
  6. FENTANYL [Concomitant]
  7. LEVAQUIN (LEVOFLOXACIN) [Concomitant]
  8. PRILOSEC [Concomitant]
  9. SENNA [Concomitant]
  10. SYNTHROID (LEVOTHYROXINE SODIUM) [Concomitant]
  11. VITAMIN D (ERGOCALCIFEROL) [Concomitant]
  12. ZOMETA (ZOLEDRONIC ACID) [Concomitant]

REACTIONS (1)
  - Thrombosis [None]
